FAERS Safety Report 5008611-X (Version None)
Quarter: 2006Q2

REPORT INFORMATION
  Report Type: 
  Country: None (occurrence: None)
  Receive Date: 20060523
  Receipt Date: 20060512
  Transmission Date: 20061013
  Serious: Yes (Other)
  Sender: FDA-Public Use
  Company Number: US-ROCHE-447823

PATIENT

DRUGS (2)
  1. GANCICLOVIR [Suspect]
     Indication: DRUG USE FOR UNKNOWN INDICATION
     Dosage: EVERY 24 HOURS.
     Route: 065
  2. GANCICLOVIR [Suspect]
     Dosage: REINTRODUCED AT A LOWER DOSE.
     Route: 065

REACTIONS (3)
  - APHASIA [None]
  - CONFUSIONAL STATE [None]
  - DISORIENTATION [None]
